FAERS Safety Report 15576172 (Version 1)
Quarter: 2018Q4

REPORT INFORMATION
  Report Type: Spontaneous
  Country: US (occurrence: US)
  Receive Date: 20181101
  Receipt Date: 20181101
  Transmission Date: 20190205
  Serious: No
  Sender: FDA-Public Use
  Company Number: US-TEVA-2018-US-970027

PATIENT
  Age: 71 Year
  Sex: Male

DRUGS (1)
  1. NORTRCAP [Suspect]
     Active Substance: NORTRIPTYLINE
     Indication: BACK PAIN
     Route: 065
     Dates: start: 20150603, end: 2015

REACTIONS (2)
  - Vision blurred [Not Recovered/Not Resolved]
  - Dry mouth [Unknown]

NARRATIVE: CASE EVENT DATE: 20150603
